FAERS Safety Report 11134433 (Version 1)
Quarter: 2015Q2

REPORT INFORMATION
  Report Type: Report from Study
  Country: US (occurrence: US)
  Receive Date: 20150525
  Receipt Date: 20150525
  Transmission Date: 20150821
  Serious: Yes (Other)
  Sender: FDA-Public Use
  Company Number: US-ROCHE-1581772

PATIENT
  Sex: Female

DRUGS (1)
  1. RANIBIZUMAB [Suspect]
     Active Substance: RANIBIZUMAB
     Indication: OCULAR VASCULAR DISORDER
     Route: 050

REACTIONS (3)
  - Eye pain [Unknown]
  - Eye swelling [Unknown]
  - Blindness [Unknown]
